FAERS Safety Report 20606027 (Version 3)
Quarter: 2022Q4

REPORT INFORMATION
  Report Type: Spontaneous
  Country: US (occurrence: US)
  Receive Date: 20220317
  Receipt Date: 20221011
  Transmission Date: 20230112
  Serious: Yes (Death, Other)
  Sender: FDA-Public Use
  Company Number: US-SA-SAC20220314002039

PATIENT
  Age: 66 Year
  Sex: Female

DRUGS (1)
  1. ZANTAC [Suspect]
     Active Substance: RANITIDINE HYDROCHLORIDE
     Indication: Dyspepsia
     Dosage: 300 MG, QD
     Route: 065
     Dates: start: 200012, end: 201911

REACTIONS (7)
  - Lung neoplasm malignant [Fatal]
  - Bone cancer [Unknown]
  - Brain cancer metastatic [Unknown]
  - Hepatic cancer stage IV [Not Recovered/Not Resolved]
  - Disease progression [Not Recovered/Not Resolved]
  - Spinal cord neoplasm [Unknown]
  - Endocrine neoplasm [Unknown]

NARRATIVE: CASE EVENT DATE: 20190808
